FAERS Safety Report 18874680 (Version 2)
Quarter: 2021Q1

REPORT INFORMATION
  Report Type: Spontaneous
  Country: RS (occurrence: RS)
  Receive Date: 20210211
  Receipt Date: 20210304
  Transmission Date: 20210420
  Serious: Yes (Other)
  Sender: FDA-Public Use
  Company Number: RS-ROCHE-2765627

PATIENT
  Age: 55 Year
  Sex: Female

DRUGS (3)
  1. AVASTIN [Suspect]
     Active Substance: BEVACIZUMAB
     Indication: OVARIAN CANCER
     Route: 042
     Dates: start: 20210114, end: 20210205
  2. CARBOPLATINA [Concomitant]
     Active Substance: CARBOPLATIN
     Dates: start: 20200922
  3. TAXOL [Concomitant]
     Active Substance: PACLITAXEL
     Dates: start: 20200922

REACTIONS (2)
  - Haemoptysis [Unknown]
  - Lung consolidation [Unknown]

NARRATIVE: CASE EVENT DATE: 20210127
